FAERS Safety Report 18154455 (Version 2)
Quarter: 2020Q3

REPORT INFORMATION
  Report Type: Spontaneous
  Country: US (occurrence: US)
  Receive Date: 20200817
  Receipt Date: 20200831
  Transmission Date: 20201103
  Serious: No
  Sender: FDA-Public Use
  Company Number: US-JNJFOC-20200815000

PATIENT
  Sex: Female
  Weight: 74.91 kg

DRUGS (1)
  1. IMODIUM A?D [Suspect]
     Active Substance: LOPERAMIDE HYDROCHLORIDE
     Indication: DIARRHOEA
     Dosage: COUPLE TIME A WEEK?PRODUCT START DATE: 10?15 YEARS AGO
     Route: 048

REACTIONS (1)
  - Product dose omission issue [Unknown]
